FAERS Safety Report 5284279-2 (Version None)
Quarter: 2007Q1

REPORT INFORMATION
  Report Type: 
  Country: None (occurrence: None)
  Receive Date: 20070327
  Receipt Date: 20070315
  Transmission Date: 20070707
  Serious: Yes (Hospitalization, Other)
  Sender: FDA-Public Use
  Company Number: 163-21880-07030825

PATIENT
  Age: 62 Year
  Sex: Female
  Weight: 62.77 kg

DRUGS (14)
  1. REVLIMID [Suspect]
     Indication: MULTIPLE MYELOMA
     Dosage: 25 MG, QD, DAYS 1-21, EVERY 28 DAYS, ORAL
     Route: 048
     Dates: start: 20060328, end: 20060412
  2. DEXAMETHASONE [Suspect]
     Indication: MULTIPLE MYELOMA
     Dosage: 40 MG, QD, DAYS 1, 8, 15, AND 22 Q 28 DAYS, ORAL
     Route: 048
     Dates: start: 20060328, end: 20060411
  3. CIPROFLOXACIN [Suspect]
     Indication: PROPHYLAXIS
  4. ASPIRIN [Concomitant]
  5. MULTIVITAMIN (MULTIVIT) [Concomitant]
  6. DURAGESIC-100 [Concomitant]
  7. OXYCODONE HCL [Concomitant]
  8. CALCITONIN SALMON [Concomitant]
  9. NEXIUM [Concomitant]
  10. LANOXIN [Concomitant]
  11. CARDIZEM [Concomitant]
  12. TAMBOCOR [Concomitant]
  13. TOPROL-XL [Concomitant]
  14. COUMADIN [Concomitant]

REACTIONS (22)
  - ANAEMIA [None]
  - ATELECTASIS [None]
  - ATRIAL FIBRILLATION [None]
  - CHEST PAIN [None]
  - DEHYDRATION [None]
  - DILATATION ATRIAL [None]
  - DISEASE PROGRESSION [None]
  - DYSPNOEA [None]
  - HYPERCALCAEMIA [None]
  - HYPERGLYCAEMIA [None]
  - LUNG INFILTRATION [None]
  - MULTIPLE MYELOMA [None]
  - NAUSEA [None]
  - ORAL CANDIDIASIS [None]
  - OSTEOPENIA [None]
  - OSTEOPOROSIS [None]
  - PERICARDIAL EFFUSION [None]
  - PLEURAL EFFUSION [None]
  - RENAL FAILURE [None]
  - VENTRICULAR HYPERTROPHY [None]
  - VIRAL PERICARDITIS [None]
  - VOMITING [None]
